FAERS Safety Report 6995090-6 (Version None)
Quarter: 2010Q3

REPORT INFORMATION
  Report Type: 
  Country: None (occurrence: None)
  Receive Date: 20100915
  Receipt Date: 20100831
  Transmission Date: 20110219
  Serious: Yes (Hospitalization)
  Sender: FDA-Public Use
  Company Number: US-DEXPHARM-20101408

PATIENT
  Sex: Female
  Weight: 54.42 kg

DRUGS (7)
  1. OMEPRAZOLE [Suspect]
     Indication: GASTROOESOPHAGEAL REFLUX DISEASE
     Dosage: 20 MG TWICE A DAY, ORAL
     Route: 048
     Dates: start: 20080101
  2. VITAMIN D WITH CALCIUM [Concomitant]
  3. MULTIVITAMIN AND MINERAL [Concomitant]
  4. TURNS (CALCIUM CARBONATE) [Concomitant]
  5. DARVOCET-N (DEXTROPROPOXYPHENE NAPSILATE; PARACETAMOL) [Concomitant]
  6. FLEXERIL [Concomitant]
  7. ACETAMINOPHEN [Concomitant]

REACTIONS (4)
  - FALL [None]
  - FEMORAL NECK FRACTURE [None]
  - HEPATIC ENZYME INCREASED [None]
  - JOINT SPRAIN [None]
